FAERS Safety Report 4562047-4 (Version None)
Quarter: 2005Q1

REPORT INFORMATION
  Report Type: 
  Country: None (occurrence: None)
  Receive Date: 20050125
  Receipt Date: 20040210
  Transmission Date: 20050727
  Serious: Yes (Death, Hospitalization)
  Sender: FDA-Public Use
  Company Number: 2004198271US

PATIENT
  Age: 80 Year
  Sex: Male
  Weight: 77.1 kg

DRUGS (3)
  1. DAYPRO [Suspect]
     Indication: ARTHRITIS
     Dosage: QD, ORAL
     Route: 048
  2. PLAVIX [Suspect]
     Indication: ISCHAEMIC STROKE
     Dosage: 75 MG, QD, ORAL
     Route: 048
     Dates: start: 20001001
  3. ASPIRIN [Suspect]
     Dosage: 325 MG, QD, ORAL
     Route: 048

REACTIONS (5)
  - AORTIC DISORDER [None]
  - FALL [None]
  - HAEMORRHAGE [None]
  - HEPATOCELLULAR DAMAGE [None]
  - RECTAL HAEMORRHAGE [None]
